FAERS Safety Report 15340689 (Version 1)
Quarter: 2018Q3

REPORT INFORMATION
  Report Type: Spontaneous
  Country: None (occurrence: FR)
  Receive Date: 20180831
  Receipt Date: 20180831
  Transmission Date: 20181010
  Serious: Yes (Hospitalization)
  Sender: FDA-Public Use
  Company Number: FR-MEDAC PHARMA, INC.-2054544

PATIENT
  Age: 70 Year
  Sex: Male
  Weight: 82 kg

DRUGS (10)
  1. NATRIXAM [Concomitant]
     Active Substance: AMLODIPINE\INDAPAMIDE
  2. METOJECT [Suspect]
     Active Substance: METHOTREXATE SODIUM
     Indication: RHEUMATOID ARTHRITIS
     Route: 058
     Dates: start: 2011, end: 20180401
  3. MICARDIS [Suspect]
     Active Substance: TELMISARTAN
     Route: 048
     Dates: end: 20170501
  4. NEXIUM [Concomitant]
     Active Substance: ESOMEPRAZOLE MAGNESIUM
  5. OXAZEPAM. [Concomitant]
     Active Substance: OXAZEPAM
  6. AMPHOTERICIN B. [Concomitant]
     Active Substance: AMPHOTERICIN B
  7. LEVOTHYROXINE SODIUM. [Concomitant]
     Active Substance: LEVOTHYROXINE SODIUM
  8. PREDNISONE. [Concomitant]
     Active Substance: PREDNISONE
  9. TEMERITDUO [Concomitant]
     Active Substance: HYDROCHLOROTHIAZIDE\NEBIVOLOL HYDROCHLORIDE
  10. CRESTOR [Concomitant]
     Active Substance: ROSUVASTATIN CALCIUM

REACTIONS (3)
  - Sjogren^s syndrome [Recovering/Resolving]
  - Tinnitus [Not Recovered/Not Resolved]
  - Leukoencephalopathy [Not Recovered/Not Resolved]

NARRATIVE: CASE EVENT DATE: 201703
